FAERS Safety Report 9203214 (Version 1)
Quarter: 2013Q1

REPORT INFORMATION
  Report Type: Spontaneous
  Country: US (occurrence: None)
  Receive Date: 20120709
  Receipt Date: 20120709
  Transmission Date: 20140127
  Serious: Yes (Other)
  Sender: FDA-Public Use
  Company Number: PHEH2011US01558

PATIENT
  Sex: Female

DRUGS (1)
  1. GLEEVEC (IMATINIB) UNKNOWN [Suspect]
     Indication: MALIGNANT MAST CELL NEOPLASM
     Route: 048
     Dates: end: 20110810

REACTIONS (4)
  - Depression [None]
  - Fatigue [None]
  - Abdominal discomfort [None]
  - Anxiety [None]
